FAERS Safety Report 14652078 (Version 1)
Quarter: 2018Q1

REPORT INFORMATION
  Report Type: Report from Study
  Country: BR (occurrence: BR)
  Receive Date: 20180318
  Receipt Date: 20180318
  Transmission Date: 20180509
  Serious: Yes (Death, Hospitalization)
  Sender: FDA-Public Use
  Company Number: BR-EMD SERONO-E2B_90031671

PATIENT
  Sex: Female

DRUGS (1)
  1. REBIF [Suspect]
     Active Substance: INTERFERON BETA-1A
     Indication: MULTIPLE SCLEROSIS
     Route: 058
     Dates: start: 20120802

REACTIONS (3)
  - Asthenia [Unknown]
  - Gait disturbance [Unknown]
  - Death [Fatal]
